FAERS Safety Report 19210468 (Version 2)
Quarter: 2022Q1

REPORT INFORMATION
  Report Type: Other
  Country: US (occurrence: None)
  Receive Date: 20210504
  Receipt Date: 20220110
  Transmission Date: 20220423
  Serious: Yes (Death, Other)
  Sender: FDA-Public Use
  Company Number: US-ROCHE-2786948

PATIENT

DRUGS (12)
  1. RITUXIMAB [Suspect]
     Active Substance: RITUXIMAB
     Indication: Non-Hodgkin^s lymphoma
     Dosage: X3
     Route: 042
  2. RITUXIMAB [Suspect]
     Active Substance: RITUXIMAB
     Indication: Plasma cell myeloma
  3. CYCLOPHOSPHAMIDE [Suspect]
     Active Substance: CYCLOPHOSPHAMIDE
     Indication: Non-Hodgkin^s lymphoma
     Dosage: X 3 DAYS
     Route: 042
  4. CYCLOPHOSPHAMIDE [Suspect]
     Active Substance: CYCLOPHOSPHAMIDE
     Indication: Plasma cell myeloma
  5. FLUDARABINE [Suspect]
     Active Substance: FLUDARABINE PHOSPHATE
     Indication: Non-Hodgkin^s lymphoma
     Dosage: X 3 DAYS
     Route: 042
  6. FLUDARABINE [Suspect]
     Active Substance: FLUDARABINE PHOSPHATE
     Indication: Plasma cell myeloma
  7. NICOTINAMIDE [Suspect]
     Active Substance: NIACINAMIDE
     Indication: Non-Hodgkin^s lymphoma
     Route: 065
  8. NICOTINAMIDE [Suspect]
     Active Substance: NIACINAMIDE
     Indication: Plasma cell myeloma
  9. ELOTUZUMAB [Suspect]
     Active Substance: ELOTUZUMAB
     Indication: Non-Hodgkin^s lymphoma
     Dosage: X3
     Route: 042
  10. ELOTUZUMAB [Suspect]
     Active Substance: ELOTUZUMAB
     Indication: Plasma cell myeloma
  11. ALDESLEUKIN [Suspect]
     Active Substance: ALDESLEUKIN
     Indication: Non-Hodgkin^s lymphoma
     Dosage: 6 MILLION UNITS X 3 DOSES
     Route: 058
  12. ALDESLEUKIN [Suspect]
     Active Substance: ALDESLEUKIN
     Indication: Plasma cell myeloma

REACTIONS (6)
  - Escherichia sepsis [Fatal]
  - Thrombocytopenia [Unknown]
  - Hypertension [Unknown]
  - Anaemia [Unknown]
  - Neutropenia [Unknown]
  - Febrile neutropenia [Unknown]
